FAERS Safety Report 9735973 (Version 2)
Quarter: 2014Q1

REPORT INFORMATION
  Report Type: Spontaneous
  Country: US (occurrence: US)
  Receive Date: 20131206
  Receipt Date: 20140131
  Transmission Date: 20141002
  Serious: Yes (Death, Hospitalization)
  Sender: FDA-Public Use
  Company Number: US-BAXTER-2013BAX048204

PATIENT
  Sex: Male

DRUGS (1)
  1. DIANEAL LOW CALCIUM [Suspect]
     Indication: PERITONEAL DIALYSIS
     Route: 033
     Dates: end: 20131227

REACTIONS (6)
  - Peritonitis [Fatal]
  - Lung infection [Fatal]
  - Skin necrosis [Fatal]
  - Extremity necrosis [Fatal]
  - Cardiac failure [Fatal]
  - White blood cell count decreased [Not Recovered/Not Resolved]
